FAERS Safety Report 14312913 (Version 1)
Quarter: 2017Q4

REPORT INFORMATION
  Report Type: Spontaneous
  Country: US (occurrence: US)
  Receive Date: 20171220
  Receipt Date: 20171220
  Transmission Date: 20180321
  Serious: Yes (Other)
  Sender: FDA-Public Use
  Company Number: None

PATIENT
  Sex: Female

DRUGS (2)
  1. RAPAMUNE [Suspect]
     Active Substance: SIROLIMUS
     Indication: LIVER TRANSPLANT
     Route: 048
     Dates: start: 20141111
  2. RAPAMUNE [Suspect]
     Active Substance: SIROLIMUS
     Indication: MYELOFIBROSIS
     Route: 048
     Dates: start: 20141111

REACTIONS (1)
  - Incontinence [None]
